FAERS Safety Report 12455264 (Version 1)
Quarter: 2016Q2

REPORT INFORMATION
  Report Type: Spontaneous
  Country: None (occurrence: None)
  Receive Date: 20160609
  Receipt Date: 20160609
  Transmission Date: 20160815
  Serious: Yes (Life-Threatening, Hospitalization)
  Sender: FDA-Public Use
  Company Number: None

PATIENT
  Age: 56 Year
  Sex: Male
  Weight: 104.8 kg

DRUGS (2)
  1. RHINO-7 [Suspect]
     Active Substance: DIETARY SUPPLEMENT
     Indication: SEXUAL DYSFUNCTION
     Dates: start: 20160607
  2. TADALAFIL [Suspect]
     Active Substance: TADALAFIL

REACTIONS (3)
  - Chest pain [None]
  - Dyspnoea [None]
  - Hyperhidrosis [None]

NARRATIVE: CASE EVENT DATE: 20160607
